FAERS Safety Report 6469748-1 (Version None)
Quarter: 2009Q4

REPORT INFORMATION
  Report Type: 
  Country: None (occurrence: None)
  Receive Date: 20091203
  Receipt Date: 20080205
  Transmission Date: 20100525
  Serious: Yes (Hospitalization, Other)
  Sender: FDA-Public Use
  Company Number: JP-ELI_LILLY_AND_COMPANY-JP200708003546

PATIENT
  Sex: Male
  Weight: 64 kg

DRUGS (7)
  1. PEMETREXED [Suspect]
     Indication: PLEURAL MESOTHELIOMA MALIGNANT
     Dosage: 870 UNK, OTHER
     Route: 042
     Dates: start: 20070328, end: 20070418
  2. PEMETREXED [Suspect]
     Dosage: 800 MG, OTHER
     Route: 042
     Dates: start: 20070530, end: 20070530
  3. CISPLATIN [Suspect]
     Indication: PLEURAL MESOTHELIOMA MALIGNANT
     Dosage: 130 MG, OTHER
     Route: 042
     Dates: start: 20070328, end: 20070418
  4. AMARYL [Concomitant]
     Indication: DIABETES MELLITUS
     Dosage: 1 MG, DAILY (1/D)
     Route: 048
  5. PANVITAN [Concomitant]
     Dosage: 0.5 MG, DAILY (1/D)
     Route: 048
     Dates: start: 20070320, end: 20070618
  6. VITAMIN B-12 [Concomitant]
     Dosage: 1 MG, UNK
     Route: 030
     Dates: start: 20070320, end: 20070320
  7. VITAMIN B-12 [Concomitant]
     Dosage: 1 MG, UNK
     Route: 030
     Dates: start: 20070521, end: 20070521

REACTIONS (10)
  - ANAEMIA [None]
  - BLOOD UREA INCREASED [None]
  - DECREASED APPETITE [None]
  - DEHYDRATION [None]
  - MALIGNANT NEOPLASM PROGRESSION [None]
  - NAUSEA [None]
  - NEUTROPHIL COUNT DECREASED [None]
  - PLEURAL MESOTHELIOMA MALIGNANT [None]
  - VOMITING [None]
  - WHITE BLOOD CELL COUNT DECREASED [None]
